FAERS Safety Report 5804523-X (Version None)
Quarter: 2008Q3

REPORT INFORMATION
  Report Type: 
  Country: None (occurrence: None)
  Receive Date: 20080707
  Receipt Date: 20080626
  Transmission Date: 20090109
  Serious: Yes (Hospitalization)
  Sender: FDA-Public Use
  Company Number: GXKR2008IT05959

PATIENT
  Age: 75 Year
  Sex: Female

DRUGS (9)
  1. TRAMADOL HCL [Suspect]
     Indication: ABDOMINAL PAIN
     Dosage: 100 MG, ORAL
     Route: 048
     Dates: start: 20080609, end: 20080612
  2. TORADOL [Suspect]
     Indication: ARTHRALGIA
     Dosage: 30 MG, INTRAMUSCULAR
     Route: 030
     Dates: start: 20080616, end: 20080621
  3. NAPROXEN SODIUM [Suspect]
     Indication: ARTHRALGIA
     Dosage: 550 MG, ORAL
     Route: 048
     Dates: start: 20080613, end: 20080615
  4. CO-EFFERALGAN (CODEINE PHOSPHATE, PARACETAMOL) [Suspect]
     Indication: ABDOMINAL PAIN
     Dosage: 500 MG, ORAL
     Route: 048
     Dates: start: 20080603, end: 20080606
  5. NITROGLYCERIN (GLYCERYL TRINITRATE) PATCH [Concomitant]
  6. LANSOPRAZOLE [Concomitant]
  7. LASIX [Concomitant]
  8. VERECOLENE C.M. (BISACODYL) [Concomitant]
  9. HUMALOG [Concomitant]

REACTIONS (3)
  - ABDOMINAL PAIN [None]
  - DUODENAL ULCER [None]
  - GASTRIC ULCER [None]
